FAERS Safety Report 7319960-4 (Version None)
Quarter: 2011Q1

REPORT INFORMATION
  Report Type: 
  Country: None (occurrence: None)
  Receive Date: 20110228
  Receipt Date: 20110218
  Transmission Date: 20110831
  Serious: Yes (Other)
  Sender: FDA-Public Use
  Company Number: CN-ASTRAZENECA-2011SE09623

PATIENT
  Age: 53 Year
  Sex: Female

DRUGS (6)
  1. CARBOPLATIN [Concomitant]
     Indication: LUNG ADENOCARCINOMA
  2. GEFITINIB [Suspect]
     Indication: LUNG ADENOCARCINOMA
     Route: 048
     Dates: start: 20070329, end: 20070410
  3. DOCETAXEL [Concomitant]
     Indication: LUNG ADENOCARCINOMA
  4. RADIOTHERAPY [Concomitant]
     Indication: LUNG ADENOCARCINOMA
  5. GEMZAR [Concomitant]
     Indication: LUNG ADENOCARCINOMA
  6. ANTIBIOTICS [Concomitant]
     Indication: PYREXIA
     Dates: start: 20070325, end: 20070401

REACTIONS (2)
  - INTERSTITIAL LUNG DISEASE [None]
  - SUFFOCATION FEELING [None]
